FAERS Safety Report 18382598 (Version 1)
Quarter: 2020Q4

REPORT INFORMATION
  Report Type: Spontaneous
  Country: US (occurrence: US)
  Receive Date: 20201013
  Receipt Date: 20201013
  Transmission Date: 20210114
  Serious: Yes (Other)
  Sender: FDA-Public Use
  Company Number: None

PATIENT
  Age: 59 Year
  Sex: Female

DRUGS (5)
  1. LEVOTHYROXIN [Suspect]
     Active Substance: LEVOTHYROXINE
  2. OCTREOTIDE 200MCG/ML MDV [Suspect]
     Active Substance: OCTREOTIDE
     Indication: SMALL INTESTINE CARCINOMA
     Route: 058
     Dates: start: 20200425
  3. BYNFEZIA PEN [Suspect]
     Active Substance: OCTREOTIDE ACETATE
  4. VITAMIN D [Suspect]
     Active Substance: VITAMIN D NOS
  5. CREON [Suspect]
     Active Substance: PANCRELIPASE AMYLASE\PANCRELIPASE LIPASE\PANCRELIPASE PROTEASE

REACTIONS (1)
  - Breast cancer [None]

NARRATIVE: CASE EVENT DATE: 20201008
